FAERS Safety Report 7015435-0 (Version None)
Quarter: 2010Q3

REPORT INFORMATION
  Report Type: 
  Country: None (occurrence: None)
  Receive Date: 20100927
  Receipt Date: 20100915
  Transmission Date: 20110219
  Serious: Yes (Other)
  Sender: FDA-Public Use
  Company Number: US-ELI_LILLY_AND_COMPANY-US201009004386

PATIENT
  Sex: Female

DRUGS (8)
  1. FORTEO [Suspect]
     Indication: OSTEOPOROSIS
     Dosage: UNK, UNKNOWN
     Route: 065
  2. ADVAIR DISKUS 100/50 [Concomitant]
  3. PAXYL [Concomitant]
  4. NEXIUM [Concomitant]
  5. DIOVAN [Concomitant]
  6. ZOCOR [Concomitant]
  7. CENTRUM [Concomitant]
  8. VITAMIN B-12 [Concomitant]

REACTIONS (1)
  - PELVIC FRACTURE [None]
